FAERS Safety Report 5417743-3 (Version None)
Quarter: 2007Q3

REPORT INFORMATION
  Report Type: 
  Country: None (occurrence: None)
  Receive Date: 20070815
  Receipt Date: 20070815
  Transmission Date: 20080115
  Serious: Yes (Hospitalization)
  Sender: FDA-Public Use
  Company Number: None

PATIENT
  Sex: Female

DRUGS (2)
  1. REGLAN [Suspect]
     Indication: NAUSEA
     Dates: start: 20060915, end: 20060916
  2. REGLAN [Suspect]
     Indication: VOMITING
     Dates: start: 20060915, end: 20060916

REACTIONS (2)
  - BURNING SENSATION [None]
  - TREMOR [None]
